FAERS Safety Report 6214152-4 (Version None)
Quarter: 2009Q2

REPORT INFORMATION
  Report Type: 
  Country: None (occurrence: None)
  Receive Date: 20090604
  Receipt Date: 20090602
  Transmission Date: 20091009
  Serious: Yes (Other)
  Sender: FDA-Public Use
  Company Number: AU-BRISTOL-MYERS SQUIBB COMPANY-14630370

PATIENT
  Age: 46 Year
  Sex: Female
  Weight: 59 kg

DRUGS (1)
  1. ENTECAVIR [Suspect]
     Indication: HEPATITIS B
     Route: 048
     Dates: start: 20080409

REACTIONS (1)
  - BREAST CANCER [None]
